FAERS Safety Report 24730720 (Version 1)
Quarter: 2024Q4

REPORT INFORMATION
  Report Type: Spontaneous
  Country: US (occurrence: None)
  Receive Date: 20241212
  Receipt Date: 20241212
  Transmission Date: 20250115
  Serious: Yes (Life-Threatening, Hospitalization)
  Sender: Public
  Company Number: None

PATIENT
  Age: 66 Year
  Sex: Male
  Weight: 120 kg

DRUGS (3)
  1. CEFDINIR [Suspect]
     Active Substance: CEFDINIR
     Indication: Infection
     Dosage: FREQUENCY : DAILY;?
     Route: 048
  2. WARFARIN [Suspect]
     Active Substance: WARFARIN
  3. MACROBID [Suspect]
     Active Substance: NITROFURANTOIN\NITROFURANTOIN MONOHYDRATE

REACTIONS (4)
  - Pruritus [None]
  - Rash [None]
  - International normalised ratio [None]
  - Therapy cessation [None]

NARRATIVE: CASE EVENT DATE: 20240122
